FAERS Safety Report 21963230 (Version 1)
Quarter: 2023Q1

REPORT INFORMATION
  Report Type: Spontaneous
  Country: US (occurrence: US)
  Receive Date: 20230207
  Receipt Date: 20230207
  Transmission Date: 20230417
  Serious: Yes (Other)
  Sender: FDA-Public Use
  Company Number: US-SA-SAC20230201001731

PATIENT
  Sex: Male

DRUGS (2)
  1. ELOCTATE [Suspect]
     Active Substance: EFMOROCTOCOG ALFA
     Indication: Haemorrhage
     Dosage: 5500 U, BID ((4950-6050) SLOW IV PUSH TWICE A WEEK)
     Route: 042
     Dates: start: 202210
  2. ELOCTATE [Suspect]
     Active Substance: EFMOROCTOCOG ALFA
     Indication: Haemorrhage
     Dosage: 5500 U, BID ((4950-6050) SLOW IV PUSH TWICE A WEEK)
     Route: 042
     Dates: start: 202210

REACTIONS (2)
  - Haemorrhage [Unknown]
  - Lower limb fracture [Unknown]
